FAERS Safety Report 5360698-0 (Version None)
Quarter: 2007Q2

REPORT INFORMATION
  Report Type: 
  Country: None (occurrence: None)
  Receive Date: 20070614
  Receipt Date: 20070530
  Transmission Date: 20071010
  Serious: Yes (Hospitalization)
  Sender: FDA-Public Use
  Company Number: US-CVT-070074

PATIENT
  Age: 77 Year
  Sex: Male

DRUGS (11)
  1. RANEXA [Suspect]
     Indication: ANGINA PECTORIS
     Dosage: SEE IMAGE
     Route: 048
     Dates: start: 20070201, end: 20070201
  2. RANEXA [Suspect]
     Indication: ANGINA PECTORIS
     Dosage: SEE IMAGE
     Route: 048
     Dates: start: 20070309, end: 20070310
  3. LABETALOL HCL [Concomitant]
  4. ASPIRIN /00002701/(ACETYLKSALICYLIC ACID) [Concomitant]
  5. TERAZOSIN HCL [Concomitant]
  6. NITOL (GLYCERYL TRINITRATE) [Concomitant]
  7. HYDROCHLOROTHIAZIDE [Concomitant]
  8. BUDESONIDE [Concomitant]
  9. NORVASC/00972401/(AMLODIPINE) [Concomitant]
  10. IMDUR (ISOSORBIDO MONONITRATE) [Concomitant]
  11. VYTORIN [Concomitant]

REACTIONS (3)
  - DISORIENTATION [None]
  - HYPOTENSION [None]
  - MENINGITIS VIRAL [None]
